FAERS Safety Report 11380614 (Version 1)
Quarter: 2015Q3

REPORT INFORMATION
  Report Type: Spontaneous
  Country: US (occurrence: US)
  Receive Date: 20150814
  Receipt Date: 20150814
  Transmission Date: 20151125
  Serious: No
  Sender: FDA-Public Use
  Company Number: US-JNJFOC-20150715779

PATIENT
  Sex: Female
  Weight: 97.52 kg

DRUGS (1)
  1. LEVAQUIN [Suspect]
     Active Substance: LEVOFLOXACIN
     Indication: VIRAL INFECTION
     Route: 065

REACTIONS (1)
  - Nasopharyngitis [Unknown]
